FAERS Safety Report 18545954 (Version 1)
Quarter: 2020Q4

REPORT INFORMATION
  Report Type: Spontaneous
  Country: JP (occurrence: JP)
  Receive Date: 20201125
  Receipt Date: 20201125
  Transmission Date: 20210114
  Serious: Yes (Hospitalization, Other)
  Sender: FDA-Public Use
  Company Number: JP-JNJFOC-A-CH2020-202423

PATIENT
  Age: 3 Month
  Sex: Male

DRUGS (5)
  1. NITRIC OXIDE. [Concomitant]
     Active Substance: NITRIC OXIDE
  2. BOSENTAN. [Suspect]
     Active Substance: BOSENTAN
     Route: 048
  3. UPTRAVI [Suspect]
     Active Substance: SELEXIPAG
     Indication: PULMONARY ARTERIAL HYPERTENSION
     Route: 048
  4. BOSENTAN. [Suspect]
     Active Substance: BOSENTAN
     Indication: PULMONARY ARTERIAL HYPERTENSION
     Dosage: UNK
     Route: 048
  5. TADALAFIL. [Concomitant]
     Active Substance: TADALAFIL

REACTIONS (9)
  - Device related infection [Unknown]
  - Pulmonary congestion [Unknown]
  - Concomitant disease progression [Unknown]
  - Respiratory disorder [Unknown]
  - Catheter management [Unknown]
  - Therapeutic response decreased [Unknown]
  - Pulmonary veno-occlusive disease [Unknown]
  - Syncope [Unknown]
  - Staphylococcus test [Unknown]
